APPROVED DRUG PRODUCT: PRAVASTATIN SODIUM
Active Ingredient: PRAVASTATIN SODIUM
Strength: 10MG
Dosage Form/Route: TABLET;ORAL
Application: A076056 | Product #001 | TE Code: AB
Applicant: AUROBINDO PHARMA USA INC
Approved: Apr 24, 2006 | RLD: No | RS: No | Type: RX